FAERS Safety Report 6962583-7 (Version None)
Quarter: 2010Q3

REPORT INFORMATION
  Report Type: 
  Country: None (occurrence: None)
  Receive Date: 20100823
  Receipt Date: 20100518
  Transmission Date: 20110219
  Serious: Yes (Hospitalization)
  Sender: FDA-Public Use
  Company Number: 012097

PATIENT
  Sex: Female
  Weight: 85.2762 kg

DRUGS (11)
  1. CIMZIA [Suspect]
     Indication: CROHN'S DISEASE
     Dosage: ()
  2. REMICADE [Suspect]
     Indication: CROHN'S DISEASE
     Dosage: (5 MG/KG QD), (5 MG/KG QD), (5 MG/KG QD), (5 MG/KG QD)
     Dates: start: 20020212
  3. REMICADE [Suspect]
     Indication: CROHN'S DISEASE
     Dosage: (5 MG/KG QD), (5 MG/KG QD), (5 MG/KG QD), (5 MG/KG QD)
     Dates: start: 20021114
  4. REMICADE [Suspect]
     Indication: CROHN'S DISEASE
     Dosage: (5 MG/KG QD), (5 MG/KG QD), (5 MG/KG QD), (5 MG/KG QD)
     Dates: start: 20021127
  5. REMICADE [Suspect]
     Indication: CROHN'S DISEASE
     Dosage: (5 MG/KG QD), (5 MG/KG QD), (5 MG/KG QD), (5 MG/KG QD)
     Dates: start: 20021230
  6. HUMIRA [Suspect]
     Indication: CROHN'S DISEASE
     Dosage: ()
  7. MERCAPTOPURINE [Concomitant]
  8. MESALAMINE [Concomitant]
  9. ANALGESICS [Concomitant]
  10. ANTIDEPRESSANTS [Concomitant]
  11. PREDNISONE [Concomitant]

REACTIONS (1)
  - CROHN'S DISEASE [None]
